FAERS Safety Report 4556040-5 (Version None)
Quarter: 2005Q1

REPORT INFORMATION
  Report Type: 
  Country: None (occurrence: None)
  Receive Date: 20050119
  Receipt Date: 20040220
  Transmission Date: 20050727
  Serious: Yes (Disabling, Other)
  Sender: FDA-Public Use
  Company Number: FR-GLAXOSMITHKLINE-B0324967A

PATIENT
  Age: 56 Year
  Sex: Female

DRUGS (5)
  1. DEROXAT [Suspect]
     Indication: DEPRESSION
     Route: 048
     Dates: start: 20030601, end: 20031201
  2. ESTREVA GEL [Concomitant]
  3. UTROGESTAN [Concomitant]
  4. STRESAM [Concomitant]
     Dosage: 1UNIT PER DAY
     Route: 048
     Dates: start: 20030601, end: 20030601
  5. ZOLPIDEM TARTRATE [Concomitant]
     Indication: INSOMNIA
     Dosage: .5UNIT AT NIGHT
     Route: 048
     Dates: end: 20030901

REACTIONS (8)
  - AGGRESSION [None]
  - COMPULSIONS [None]
  - DRUG INEFFECTIVE [None]
  - INSOMNIA [None]
  - LETHARGY [None]
  - LIBIDO INCREASED [None]
  - OBSESSIVE THOUGHTS [None]
  - SUICIDAL IDEATION [None]
